FAERS Safety Report 5884407-1 (Version None)
Quarter: 2008Q3

REPORT INFORMATION
  Report Type: 
  Country: None (occurrence: None)
  Receive Date: 20080915
  Receipt Date: 20080814
  Transmission Date: 20090109
  Serious: Yes (Other)
  Sender: FDA-Public Use
  Company Number: US-MERCK-0808USA02676

PATIENT
  Age: 40 Year
  Sex: Female
  Weight: 55 kg

DRUGS (3)
  1. ISENTRESS [Suspect]
     Indication: HIV INFECTION
     Route: 048
     Dates: start: 20080630, end: 20080806
  2. VIRAMUNE [Concomitant]
     Route: 065
  3. REYATAZ [Concomitant]
     Route: 065

REACTIONS (3)
  - ANXIETY [None]
  - FEAR [None]
  - HYPOAESTHESIA [None]
